FAERS Safety Report 9545832 (Version 1)
Quarter: 2013Q3

REPORT INFORMATION
  Report Type: Spontaneous
  Country: FR (occurrence: FR)
  Receive Date: 20130923
  Receipt Date: 20130923
  Transmission Date: 20140515
  Serious: Yes (Other)
  Sender: FDA-Public Use
  Company Number: FR-WATSON-2013-16567

PATIENT
  Age: 17 Year
  Sex: Female

DRUGS (4)
  1. KETOPROFEN (UNKNOWN) [Suspect]
     Indication: PRODUCT USED FOR UNKNOWN INDICATION
     Dosage: UNK, UNK
     Route: 065
     Dates: start: 20081211, end: 20081213
  2. PROFENID [Suspect]
     Indication: PRODUCT USED FOR UNKNOWN INDICATION
     Dosage: 100 MG, UNK
     Route: 040
     Dates: start: 20081215, end: 20081216
  3. ROCEPHINE [Concomitant]
     Indication: PYELONEPHRITIS
     Dosage: UNK, UNK
     Dates: start: 20081215, end: 20081216
  4. CYPROTERONE [Concomitant]
     Indication: ORAL CONTRACEPTION
     Dosage: UNK, UNK
     Route: 065

REACTIONS (1)
  - Cellulitis [Unknown]
